FAERS Safety Report 7693839-0 (Version None)
Quarter: 2011Q3

REPORT INFORMATION
  Report Type: 
  Country: None (occurrence: None)
  Receive Date: 20110815
  Receipt Date: 20110808
  Transmission Date: 20111222
  Serious: Yes (Death)
  Sender: FDA-Public Use
  Company Number: DSA_46929_2011

PATIENT
  Sex: Male
  Weight: 63.5036 kg

DRUGS (4)
  1. RISPERIDONE [Concomitant]
  2. XENAZINE [Suspect]
     Indication: CHOREA
     Dosage: (25 MG TID ORAL)
     Route: 048
     Dates: start: 20100510
  3. CITALOPRAM [Concomitant]
  4. VITAMIN B COMPLEX CAP [Concomitant]

REACTIONS (8)
  - DEMENTIA [None]
  - WEIGHT INCREASED [None]
  - INSOMNIA [None]
  - DYSARTHRIA [None]
  - HUNTINGTON'S DISEASE [None]
  - FAILURE TO THRIVE [None]
  - MOVEMENT DISORDER [None]
  - HAEMATURIA [None]
